FAERS Safety Report 17188488 (Version 2)
Quarter: 2020Q2

REPORT INFORMATION
  Report Type: Report from Study
  Country: US (occurrence: US)
  Receive Date: 20191222
  Receipt Date: 20200526
  Transmission Date: 20200713
  Serious: No
  Sender: FDA-Public Use
  Company Number: PHHY2018US160243

PATIENT
  Age: 47 Year
  Sex: Female

DRUGS (3)
  1. TROLAMINE SALICYLATE. [Suspect]
     Active Substance: TROLAMINE SALICYLATE
     Indication: OCCIPITAL NEURALGIA
     Dosage: UNK
     Route: 065
     Dates: start: 20190422
  2. GILENYA [Suspect]
     Active Substance: FINGOLIMOD HYDROCHLORIDE
     Indication: MULTIPLE SCLEROSIS
     Dosage: UNK, QD
     Route: 048
  3. LASIX [Concomitant]
     Active Substance: FUROSEMIDE
     Indication: ABDOMINAL DISTENSION
     Dosage: UNK
     Route: 065
     Dates: start: 20180625

REACTIONS (16)
  - Vertigo [Not Recovered/Not Resolved]
  - Cough [Recovered/Resolved]
  - Fatigue [Unknown]
  - Muscle spasms [Unknown]
  - Occipital neuralgia [Unknown]
  - Dizziness [Unknown]
  - Visual impairment [Unknown]
  - Muscular weakness [Recovered/Resolved]
  - Palpitations [Recovered/Resolved]
  - Paraesthesia [Recovered/Resolved]
  - Peripheral swelling [Not Recovered/Not Resolved]
  - Oropharyngeal pain [Recovered/Resolved]
  - Neck pain [Unknown]
  - Fluid retention [Unknown]
  - Headache [Unknown]
  - Hypoaesthesia [Recovered/Resolved]

NARRATIVE: CASE EVENT DATE: 20180625
